FAERS Safety Report 7912500-8 (Version None)
Quarter: 2011Q4

REPORT INFORMATION
  Report Type: 
  Country: None (occurrence: None)
  Receive Date: 20111114
  Receipt Date: 20111109
  Transmission Date: 20120403
  Serious: No
  Sender: FDA-Public Use
  Company Number: US-PFIZER INC-2011227116

PATIENT
  Sex: Female

DRUGS (6)
  1. FISH OIL [Concomitant]
  2. LYRICA [Suspect]
     Dosage: 100 MG, 2X/DAY
     Dates: start: 20090101
  3. LYRICA [Suspect]
     Indication: FIBROMYALGIA
     Dosage: 100 MG, 2X/DAY
     Route: 048
  4. MULTI-VITAMINS [Concomitant]
  5. ZOLOFT [Concomitant]
     Dosage: 50 MG, HS
  6. VITAMIN B COMPLEX CAP [Concomitant]

REACTIONS (1)
  - DRUG INEFFECTIVE [None]
